FAERS Safety Report 7107408-4 (Version None)
Quarter: 2010Q4

REPORT INFORMATION
  Report Type: 
  Country: None (occurrence: None)
  Receive Date: 20101111
  Receipt Date: 20101111
  Transmission Date: 20110411
  Serious: Yes (Hospitalization)
  Sender: FDA-Public Use
  Company Number: None

PATIENT
  Age: 22 Year
  Sex: Female
  Weight: 54.1 kg

DRUGS (1)
  1. CIPROFLOXACIN [Suspect]
     Indication: EAR INFECTION
     Dosage: 500 MG BID PO
     Route: 048
     Dates: start: 20101103, end: 20101109

REACTIONS (8)
  - ABNORMAL BEHAVIOUR [None]
  - DELIRIUM [None]
  - FALL [None]
  - GAIT DISTURBANCE [None]
  - HALLUCINATION, VISUAL [None]
  - INCOHERENT [None]
  - MENTAL STATUS CHANGES [None]
  - PARANOIA [None]
